FAERS Safety Report 20063597 (Version 1)
Quarter: 2021Q4

REPORT INFORMATION
  Report Type: Spontaneous
  Country: US (occurrence: None)
  Receive Date: 20211111
  Receipt Date: 20211111
  Transmission Date: 20220303
  Serious: No
  Sender: FDA-Public Use
  Company Number: None

PATIENT
  Sex: Female

DRUGS (9)
  1. HUMIRA [Suspect]
     Active Substance: ADALIMUMAB
     Indication: Rheumatoid arthritis
     Dosage: FREQUENCY : EVERY OTHER WEEK;?
     Route: 060
     Dates: start: 20180512
  2. METHOTREXATE [Concomitant]
     Active Substance: METHOTREXATE
  3. LORAZEPAM TAB [Concomitant]
  4. ATORVASTATIN [Concomitant]
     Active Substance: ATORVASTATIN
  5. FLUTICASONE SPR [Concomitant]
  6. TIZANIDINE TAB [Concomitant]
  7. FOLIC ACID TAB [Concomitant]
  8. HYDROCAO/APAP TAB [Concomitant]
  9. FUROSEMIDE TAB [Concomitant]

REACTIONS (2)
  - Inappropriate schedule of product administration [None]
  - Hospitalisation [None]
